FAERS Safety Report 4280808-6 (Version None)
Quarter: 2004Q1

REPORT INFORMATION
  Report Type: 
  Country: None (occurrence: None)
  Receive Date: 20040129
  Receipt Date: 20040120
  Transmission Date: 20041129
  Serious: Yes (Hospitalization, Other)
  Sender: FDA-Public Use
  Company Number: US-GLAXOSMITHKLINE-B0320449A

PATIENT
  Age: 41 Year
  Sex: Male

DRUGS (4)
  1. LAMIVUDINE [Suspect]
     Route: 065
     Dates: start: 20010101
  2. STAVUDINE [Suspect]
     Route: 065
     Dates: start: 20010101
  3. NELFINAVIR [Suspect]
     Route: 065
     Dates: start: 20010101
  4. TRIMETHOPRIM-SULFAMETHOXAZOLE [Concomitant]
     Indication: INFECTION PROPHYLAXIS
     Route: 065
     Dates: start: 20010101

REACTIONS (7)
  - ABSCESS [None]
  - ACID FAST BACILLI INFECTION [None]
  - LOCAL SWELLING [None]
  - LYMPHADENITIS [None]
  - LYMPHADENOPATHY [None]
  - MYCOBACTERIUM AVIUM COMPLEX IMMUNE RESTORATION DISEASE [None]
  - NECROTISING GRANULOMATOUS LYMPHADENITIS [None]
